FAERS Safety Report 7424092-0 (Version None)
Quarter: 2011Q2

REPORT INFORMATION
  Report Type: 
  Country: None (occurrence: None)
  Receive Date: 20110419
  Receipt Date: 20110411
  Transmission Date: 20111010
  Serious: Yes (Other)
  Sender: FDA-Public Use
  Company Number: PHHY2011TW29838

PATIENT
  Age: 20 Year
  Sex: Male

DRUGS (3)
  1. TRAZODONE [Suspect]
     Indication: SLEEP DISORDER
     Dosage: 50 MG, QD PER NIGHT
  2. ZOLPIDEM [Concomitant]
     Indication: MAJOR DEPRESSION
     Dosage: 10 MG, QD PER NIGHT
  3. CITALOPRAM HYDROBROMIDE [Concomitant]
     Indication: MAJOR DEPRESSION
     Dosage: 20 MG, QD

REACTIONS (7)
  - BODY TEMPERATURE DECREASED [None]
  - BRADYCARDIA [None]
  - CHEST DISCOMFORT [None]
  - BLOOD PRESSURE DECREASED [None]
  - DIZZINESS [None]
  - HYPERHIDROSIS [None]
  - ASTHENIA [None]
